FAERS Safety Report 7793244-2 (Version None)
Quarter: 2011Q4

REPORT INFORMATION
  Report Type: 
  Country: None (occurrence: None)
  Receive Date: 20111003
  Receipt Date: 20110922
  Transmission Date: 20120403
  Serious: Yes (Other)
  Sender: FDA-Public Use
  Company Number: ES-ASTRAZENECA-2011SE56996

PATIENT
  Age: 63 Year
  Sex: Female

DRUGS (6)
  1. CRESTOR [Suspect]
     Route: 048
     Dates: start: 20101201, end: 20110301
  2. SINTROM [Concomitant]
     Indication: CARDIAC VALVE DISEASE
     Dates: start: 20101201
  3. OMEPRAZOLE [Concomitant]
  4. HYDROCHLOROTHIAZIDE [Suspect]
     Route: 048
     Dates: start: 20101201, end: 20110301
  5. MULTAQ [Suspect]
     Indication: ATRIAL FIBRILLATION
     Route: 048
     Dates: start: 20110101, end: 20110301
  6. DOXYLAMINE SUCCINATE [Suspect]
     Route: 048
     Dates: end: 20110901

REACTIONS (2)
  - PHOTOSENSITIVITY REACTION [None]
  - URTICARIA PAPULAR [None]
